FAERS Safety Report 5542817-6 (Version None)
Quarter: 2007Q4

REPORT INFORMATION
  Report Type: 
  Country: None (occurrence: None)
  Receive Date: 20071210
  Receipt Date: 20071128
  Transmission Date: 20080405
  Serious: Yes (Other)
  Sender: FDA-Public Use
  Company Number: GB-PFIZER INC-2007092354

PATIENT
  Sex: Female
  Weight: 71 kg

DRUGS (4)
  1. GENOTROPIN [Suspect]
     Indication: DRUG ADMINISTRATION ERROR
     Route: 058
     Dates: start: 20070108, end: 20070118
  2. GENOTROPIN [Suspect]
     Indication: IN VITRO FERTILISATION
  3. GENOTROPIN [Suspect]
     Indication: GROWTH HORMONE DEFICIENCY
  4. LEVOTHYROXINE SODIUM [Concomitant]
     Indication: HYPOTHYROIDISM
     Route: 048

REACTIONS (2)
  - ABORTION SPONTANEOUS [None]
  - GENITAL HAEMORRHAGE [None]
